FAERS Safety Report 7008821-6 (Version None)
Quarter: 2010Q3

REPORT INFORMATION
  Report Type: 
  Country: None (occurrence: None)
  Receive Date: 20100922
  Receipt Date: 20100908
  Transmission Date: 20110219
  Serious: Yes (Death)
  Sender: FDA-Public Use
  Company Number: SE-MYLANLABS-2010S1016508

PATIENT
  Age: 30 Year
  Sex: Male

DRUGS (9)
  1. SODIUM OXYBATE [Suspect]
     Indication: SUBSTANCE ABUSE
     Route: 065
  2. ALPRAZOLAM [Suspect]
     Route: 065
  3. ACETAMINOPHEN [Suspect]
     Route: 065
  4. MORPHINE [Suspect]
     Route: 065
  5. CODEINE [Suspect]
     Route: 065
  6. CARISOPRODOL [Suspect]
     Route: 065
  7. ZOLPIDEM [Suspect]
     Route: 065
  8. SERTRALINE HYDROCHLORIDE [Suspect]
     Route: 065
  9. AMFETAMINE [Suspect]
     Indication: SUBSTANCE ABUSE
     Route: 065

REACTIONS (2)
  - DRUG TOXICITY [None]
  - OVERDOSE [None]
